FAERS Safety Report 8812275 (Version 2)
Quarter: 2015Q2

REPORT INFORMATION
  Report Type: Spontaneous
  Country: US (occurrence: US)
  Receive Date: 20120927
  Receipt Date: 20150417
  Transmission Date: 20150821
  Serious: Yes (Hospitalization, Other)
  Sender: FDA-Public Use
  Company Number: US-ASTRAZENECA-2012SE71262

PATIENT
  Age: 71 Year
  Sex: Male
  Weight: 126.6 kg

DRUGS (5)
  1. SYMBICORT [Suspect]
     Active Substance: BUDESONIDE\FORMOTEROL FUMARATE DIHYDRATE
     Indication: ASTHMA
     Dosage: 160/4.5 TWO PUFFS BID
     Route: 055
  2. OTHER MEDICATIONS [Concomitant]
     Active Substance: UNSPECIFIED INGREDIENT
     Dosage: 18 OTHER MEDICATIONS
  3. SYMBICORT [Suspect]
     Active Substance: BUDESONIDE\FORMOTEROL FUMARATE DIHYDRATE
     Indication: CHRONIC OBSTRUCTIVE PULMONARY DISEASE
     Dosage: 160/4.5 TWO PUFFS BID
     Route: 055
  4. ACCOLATE [Suspect]
     Active Substance: ZAFIRLUKAST
     Route: 065
  5. CRESTOR [Suspect]
     Active Substance: ROSUVASTATIN CALCIUM
     Indication: CARDIAC DISORDER
     Route: 048

REACTIONS (7)
  - Walking disability [Unknown]
  - Asthma [Unknown]
  - Cardiac failure congestive [Unknown]
  - Bladder disorder [Unknown]
  - Intentional product misuse [Unknown]
  - Pneumonia [Unknown]
  - Renal disorder [Unknown]

NARRATIVE: CASE EVENT DATE: 2013
